FAERS Safety Report 10077047 (Version 1)
Quarter: 2014Q2

REPORT INFORMATION
  Report Type: Spontaneous
  Country: GB (occurrence: GB)
  Receive Date: 20140414
  Receipt Date: 20140414
  Transmission Date: 20141212
  Serious: Yes (Other)
  Sender: FDA-Public Use
  Company Number: GB-MYLANLABS-2014S1007497

PATIENT
  Age: 33 Year
  Sex: Male
  Weight: 114.3 kg

DRUGS (2)
  1. TRAZODONE [Suspect]
     Indication: SLEEP DISORDER
     Dosage: 50MG NIGHTLY
     Route: 048
  2. EPILIM CHRONO /00228502/ [Concomitant]

REACTIONS (4)
  - Body temperature increased [Recovered/Resolved]
  - Paraesthesia [Recovered/Resolved]
  - Confusional state [Recovered/Resolved]
  - Balance disorder [Recovered/Resolved]
